FAERS Safety Report 4492054-1 (Version None)
Quarter: 2004Q4

REPORT INFORMATION
  Report Type: 
  Country: None (occurrence: None)
  Receive Date: 20041101
  Receipt Date: 20041014
  Transmission Date: 20050328
  Serious: Yes (Other)
  Sender: FDA-Public Use
  Company Number: 2004-UK-01028UK

PATIENT
  Age: 74 Year
  Sex: Female

DRUGS (6)
  1. SPIRIVA [Suspect]
     Indication: CHRONIC OBSTRUCTIVE AIRWAYS DISEASE
     Dosage: 18 MCG (18 MCG, DAILY), IH
     Route: 055
     Dates: start: 20030123, end: 20040916
  2. TRAMADOL HCL [Concomitant]
  3. SALBUTAMOL (SLABUTMOL) [Concomitant]
  4. BECLOMETHASONE (BECLOMETASONE DIPROPIONATE) [Concomitant]
  5. BENDROFLUAZIDE (BENDROFLUMETHIAZIDE) [Concomitant]
  6. ACETAMINOPHEN [Concomitant]

REACTIONS (4)
  - CONSTIPATION [None]
  - DRY MOUTH [None]
  - JOINT SWELLING [None]
  - TACHYCARDIA [None]
